FAERS Safety Report 8605369-X (Version None)
Quarter: 2012Q3

REPORT INFORMATION
  Report Type: 
  Country: None (occurrence: None)
  Receive Date: 20120820
  Receipt Date: 20120104
  Transmission Date: 20120928
  Serious: Yes (Hospitalization, Other)
  Sender: FDA-Public Use
  Company Number: US-009507513-2011SP048673

PATIENT

DRUGS (4)
  1. VICTRELIS [Suspect]
     Indication: HEPATITIS C
     Dosage: UNK UNK, UNKNOWN
     Route: 065
     Dates: start: 20110824, end: 20111223
  2. PEGASYS [Suspect]
     Indication: HEPATITIS C
     Dosage: UNK UNK, UNKNOWN
     Route: 065
     Dates: start: 20110718
  3. METHOTREXATE [Concomitant]
     Indication: RHEUMATOID ARTHRITIS
     Dosage: UNK UNK, UNKNOWN
     Route: 065
  4. RIBAVIRIN [Suspect]
     Indication: HEPATITIS C
     Dosage: UNK UNK, UNKNOWN
     Route: 065
     Dates: start: 20110718, end: 20111226

REACTIONS (6)
  - DYSGEUSIA [None]
  - ANAEMIA [None]
  - NAUSEA [None]
  - DYSPNOEA [None]
  - FATIGUE [None]
  - WEIGHT INCREASED [None]
